FAERS Safety Report 9250251 (Version 2)
Quarter: 2013Q4

REPORT INFORMATION
  Report Type: Spontaneous
  Country: US (occurrence: US)
  Receive Date: 20130424
  Receipt Date: 20131219
  Transmission Date: 20140711
  Serious: Yes (Disabling, Other)
  Sender: FDA-Public Use
  Company Number: US-ASTRAZENECA-2013SE27320

PATIENT
  Age: 50 Year
  Sex: Female
  Weight: 114.3 kg

DRUGS (16)
  1. NEXIUM [Suspect]
     Indication: GASTROOESOPHAGEAL REFLUX DISEASE
     Route: 048
     Dates: start: 1992, end: 2012
  2. NEXIUM [Suspect]
     Indication: GASTROOESOPHAGEAL REFLUX DISEASE
     Route: 048
     Dates: start: 2000
  3. NEXIUM [Suspect]
     Indication: GASTROOESOPHAGEAL REFLUX DISEASE
     Route: 048
     Dates: start: 20051123
  4. ZANTAC [Concomitant]
     Dates: start: 1996, end: 1999
  5. PEPTO BISMOL [Concomitant]
     Indication: GASTROOESOPHAGEAL REFLUX DISEASE
     Dosage: AS NEEDED
  6. PEPTO BISMOL [Concomitant]
     Indication: ABDOMINAL DISCOMFORT
     Dosage: AS NEEDED
  7. TUMS [Concomitant]
     Indication: GASTROOESOPHAGEAL REFLUX DISEASE
     Dosage: AS NEEDED
  8. TUMS [Concomitant]
     Indication: ABDOMINAL DISCOMFORT
     Dosage: AS NEEDED
  9. HYDROMET [Concomitant]
     Indication: COUGH
  10. HYDROCODONE [Concomitant]
     Indication: PAIN
  11. LIDODERM [Concomitant]
     Indication: PAIN
  12. ALEVE [Concomitant]
  13. CYCLOBENZAPRINE [Concomitant]
     Dates: start: 20060529
  14. WELLBUTRIN [Concomitant]
     Dates: start: 20061016
  15. CEFPROZIL [Concomitant]
     Dates: start: 20061203
  16. PROPRANOLOL [Concomitant]
     Dates: start: 20061203

REACTIONS (15)
  - Migraine [Unknown]
  - Post-traumatic stress disorder [Unknown]
  - Back pain [Unknown]
  - Neck pain [Unknown]
  - Hip fracture [Unknown]
  - Osteoporosis [Unknown]
  - Bone disorder [Unknown]
  - Ankle fracture [Unknown]
  - Foot fracture [Unknown]
  - Clavicle fracture [Unknown]
  - Wrist fracture [Unknown]
  - Arterial disorder [Unknown]
  - Rheumatoid arthritis [Unknown]
  - Depression [Unknown]
  - Road traffic accident [Unknown]
